FAERS Safety Report 9893883 (Version 1)
Quarter: 2014Q1

REPORT INFORMATION
  Report Type: Spontaneous
  Country: US (occurrence: US)
  Receive Date: 20140213
  Receipt Date: 20140213
  Transmission Date: 20141002
  Serious: No
  Sender: FDA-Public Use
  Company Number: US-009507513-1402USA004978

PATIENT
  Age: 32 Year
  Sex: Female

DRUGS (6)
  1. GYNE-LOTRIMIN 3-DAY TREATMENT VAGINAL CREAM (NDA 21-143) [Suspect]
     Indication: VULVOVAGINAL MYCOTIC INFECTION
     Dosage: 1 DF, QD
     Route: 067
     Dates: start: 20140124, end: 20140126
  2. GYNE-LOTRIMIN 3-DAY TREATMENT VAGINAL CREAM (NDA 21-143) [Suspect]
     Indication: PRURITUS
  3. GYNE-LOTRIMIN 3-DAY TREATMENT VAGINAL CREAM (NDA 21-143) [Suspect]
     Indication: VAGINAL DISCHARGE
  4. SYNTHROID [Concomitant]
     Indication: PRODUCT USED FOR UNKNOWN INDICATION
     Dosage: UNK, UNKNOWN
  5. PEPCID [Concomitant]
     Indication: PRODUCT USED FOR UNKNOWN INDICATION
     Dosage: UNK, UNKNOWN
  6. SEROQUEL [Concomitant]
     Indication: PRODUCT USED FOR UNKNOWN INDICATION
     Dosage: UNK, UNKNOWN

REACTIONS (2)
  - Bloody discharge [Not Recovered/Not Resolved]
  - Drug effect decreased [Unknown]
